FAERS Safety Report 9341355 (Version 1)
Quarter: 2013Q2

REPORT INFORMATION
  Report Type: Spontaneous
  Country: US (occurrence: None)
  Receive Date: 20130610
  Receipt Date: 20130610
  Transmission Date: 20140414
  Serious: Yes (Hospitalization)
  Sender: FDA-Public Use
  Company Number: None

PATIENT
  Age: 68 Year
  Sex: Male
  Weight: 68.2 kg

DRUGS (2)
  1. TADALAFIL 10 MG [Suspect]
     Indication: SQUAMOUS CELL CARCINOMA OF THE ORAL CAVITY
     Dosage: ONCE A DAY
     Route: 048
     Dates: start: 20130312, end: 20130331
  2. TADALAFIL [Suspect]
     Dosage: ONCE A DAY
     Route: 048
     Dates: start: 20130312, end: 20130331

REACTIONS (6)
  - Infection [None]
  - Abscess neck [None]
  - Cellulitis [None]
  - Oral cavity fistula [None]
  - No therapeutic response [None]
  - Post procedural complication [None]
